FAERS Safety Report 15298247 (Version 1)
Quarter: 2018Q3

REPORT INFORMATION
  Report Type: Spontaneous
  Country: US (occurrence: US)
  Receive Date: 20180820
  Receipt Date: 20180820
  Transmission Date: 20181010
  Serious: No
  Sender: FDA-Public Use
  Company Number: US-ALLERGAN-1837162US

PATIENT
  Sex: Male

DRUGS (1)
  1. SAPHRIS [Suspect]
     Active Substance: ASENAPINE MALEATE
     Indication: SCHIZOPHRENIA
     Dosage: 10 MG, QD
     Route: 065

REACTIONS (5)
  - Jaw disorder [Recovered/Resolved]
  - Drooling [Unknown]
  - Food craving [Not Recovered/Not Resolved]
  - Facial spasm [Unknown]
  - Tardive dyskinesia [Unknown]
